FAERS Safety Report 5013311-6 (Version None)
Quarter: 2006Q2

REPORT INFORMATION
  Report Type: 
  Country: None (occurrence: None)
  Receive Date: 20060530
  Receipt Date: 20060410
  Transmission Date: 20061013
  Serious: No
  Sender: FDA-Public Use
  Company Number: US-GLAXOSMITHKLINE-A0601132A

PATIENT
  Age: 51 Year
  Sex: Female

DRUGS (2)
  1. WELLBUTRIN XL [Suspect]
     Indication: DEPRESSION
     Dosage: 150MG PER DAY
     Route: 048
     Dates: start: 20060405
  2. FOSAMAX [Concomitant]

REACTIONS (5)
  - DIZZINESS [None]
  - FEELING COLD [None]
  - MUSCLE FATIGUE [None]
  - MYALGIA [None]
  - PARAESTHESIA [None]
